FAERS Safety Report 5656977-X (Version None)
Quarter: 2008Q1

REPORT INFORMATION
  Report Type: 
  Country: None (occurrence: None)
  Receive Date: 20080310
  Receipt Date: 20080303
  Transmission Date: 20080703
  Serious: Yes (Other)
  Sender: FDA-Public Use
  Company Number: B0510062A

PATIENT
  Age: 34 Year
  Sex: Male

DRUGS (3)
  1. KIVEXA [Suspect]
     Indication: HIV INFECTION
  2. REYATAZ [Suspect]
     Route: 065
  3. RITONAVIR [Concomitant]
     Route: 065

REACTIONS (1)
  - JAUNDICE [None]
